FAERS Safety Report 4638717-6 (Version None)
Quarter: 2005Q2

REPORT INFORMATION
  Report Type: 
  Country: None (occurrence: None)
  Receive Date: 20050418
  Receipt Date: 20050418
  Transmission Date: 20051028
  Serious: Yes (Hospitalization)
  Sender: FDA-Public Use
  Company Number: None

PATIENT
  Sex: Female

DRUGS (4)
  1. CISPLATIN [Suspect]
     Indication: CERVIX CARCINOMA RECURRENT
     Dates: start: 20050412
  2. CETUXIMAB [Suspect]
     Indication: CERVIX CARCINOMA RECURRENT
     Dates: start: 20050412
  3. MORPHINE [Concomitant]
  4. ESTROGEN PATCH [Concomitant]

REACTIONS (4)
  - FOOD POISONING [None]
  - GASTROINTESTINAL TOXICITY [None]
  - POST PROCEDURAL NAUSEA [None]
  - POST PROCEDURAL VOMITING [None]
